FAERS Safety Report 4713690-0 (Version None)
Quarter: 2005Q3

REPORT INFORMATION
  Report Type: 
  Country: None (occurrence: None)
  Receive Date: 20050713
  Receipt Date: 20050702
  Transmission Date: 20060218
  Serious: Yes (Other)
  Sender: FDA-Public Use
  Company Number: 2005-07-0203

PATIENT

DRUGS (4)
  1. CLARITIN REDITABS [Suspect]
     Dosage: ORAL
     Route: 048
  2. CLARITIN REDITABS [Suspect]
  3. TOPAMAX [Concomitant]
  4. ZONEGRAN [Concomitant]

REACTIONS (1)
  - CONVULSION [None]
